FAERS Safety Report 22155022 (Version 1)
Quarter: 2023Q1

REPORT INFORMATION
  Report Type: Spontaneous
  Country: ES (occurrence: ES)
  Receive Date: 20230330
  Receipt Date: 20230330
  Transmission Date: 20230418
  Serious: Yes (Other)
  Sender: FDA-Public Use
  Company Number: None

PATIENT

DRUGS (1)
  1. FLUTICASONE FUROATE\VILANTEROL TRIFENATATE [Suspect]
     Active Substance: FLUTICASONE FUROATE\VILANTEROL TRIFENATATE
     Indication: Asthma
     Dosage: 1 DF, QD,1 EVERY 24 HOURS,92 MCG/22 MCG
     Route: 055
     Dates: start: 20230124, end: 20230126

REACTIONS (1)
  - Bronchospasm paradoxical [Recovered/Resolved]

NARRATIVE: CASE EVENT DATE: 20230125
